FAERS Safety Report 5252901-2 (Version None)
Quarter: 2007Q1

REPORT INFORMATION
  Report Type: 
  Country: None (occurrence: None)
  Receive Date: 20070301
  Receipt Date: 20070216
  Transmission Date: 20070707
  Serious: Yes (Hospitalization)
  Sender: FDA-Public Use
  Company Number: HU-ELI_LILLY_AND_COMPANY-HU200611004509

PATIENT
  Age: 25 Year
  Sex: Male

DRUGS (4)
  1. OLANZAPINE [Suspect]
  2. DALACIN C /UNK/ [Concomitant]
     Dosage: 600 MG, EVERY 6 HRS
     Route: 042
  3. TAVANIC [Concomitant]
     Dosage: 500 MG, 2/D
  4. QUAMATEL [Concomitant]
     Dosage: 40 MG, 2/D

REACTIONS (9)
  - EXTRAPYRAMIDAL DISORDER [None]
  - HYPERTHERMIA [None]
  - INCONTINENCE [None]
  - LEUKOCYTOSIS [None]
  - MENTAL STATUS CHANGES [None]
  - METABOLIC ACIDOSIS [None]
  - MUSCLE RIGIDITY [None]
  - NEUROLEPTIC MALIGNANT SYNDROME [None]
  - TREMOR [None]
